FAERS Safety Report 9819158 (Version 1)
Quarter: 2014Q1

REPORT INFORMATION
  Report Type: Spontaneous
  Country: US (occurrence: US)
  Receive Date: 20140115
  Receipt Date: 20140115
  Transmission Date: 20141002
  Serious: No
  Sender: FDA-Public Use
  Company Number: US-ENDO PHARMACEUTICALS INC.-PERC20130099

PATIENT
  Age: 74 Year
  Sex: Female
  Weight: 79.45 kg

DRUGS (3)
  1. PERCOCET 10MG/325MG [Suspect]
     Indication: SCIATICA
     Dosage: 60/1975 MG
     Route: 048
     Dates: start: 20130702
  2. PERCOCET 10MG/325MG [Suspect]
     Indication: NEUROPATHY PERIPHERAL
  3. PERCOCET 10MG/325MG [Suspect]
     Indication: ROAD TRAFFIC ACCIDENT

REACTIONS (1)
  - Headache [Recovered/Resolved]
